FAERS Safety Report 9669867 (Version 2)
Quarter: 2013Q4

REPORT INFORMATION
  Report Type: Spontaneous
  Country: GB (occurrence: GB)
  Receive Date: 20131105
  Receipt Date: 20131105
  Transmission Date: 20140711
  Serious: Yes (Other)
  Sender: FDA-Public Use
  Company Number: PHFR2010GB05052

PATIENT
  Age: 62 Year
  Sex: Male

DRUGS (4)
  1. CLOZARIL [Suspect]
     Indication: SCHIZOPHRENIA
     Dosage: 750 MG, QD
     Route: 048
     Dates: start: 20031103
  2. CLOZARIL [Suspect]
     Dosage: 750 MG, QD
     Route: 048
  3. CLOZARIL [Suspect]
     Dosage: 75 MG, QD
     Route: 048
  4. CLOZARIL [Suspect]
     Dosage: 50 MG, ONCE/SINGLE
     Route: 048

REACTIONS (5)
  - Accidental exposure to product [Recovered/Resolved]
  - Antipsychotic drug level increased [Recovered/Resolved]
  - Lower respiratory tract infection [Recovered/Resolved]
  - Somnolence [Recovered/Resolved]
  - Dizziness [Recovered/Resolved]
